FAERS Safety Report 10397080 (Version 1)
Quarter: 2014Q3

REPORT INFORMATION
  Report Type: Spontaneous
  Country: US (occurrence: US)
  Receive Date: 20140820
  Receipt Date: 20140820
  Transmission Date: 20150326
  Serious: Yes (Hospitalization)
  Sender: FDA-Public Use
  Company Number: US-B.I. PHARMACEUTICALS,INC./RIDGEFIELD-2014-BI-38152BP

PATIENT
  Age: 67 Year
  Sex: Male
  Weight: 85.27 kg

DRUGS (10)
  1. COREG [Concomitant]
     Active Substance: CARVEDILOL
     Dosage: 50 MG
     Route: 048
  2. AMARYL [Concomitant]
     Active Substance: GLIMEPIRIDE
     Dosage: 2 MG
     Route: 048
  3. ZESTORETIC [Concomitant]
     Active Substance: HYDROCHLOROTHIAZIDE\LISINOPRIL
     Dosage: 2 ANZ
     Route: 048
  4. CRESTOR [Concomitant]
     Active Substance: ROSUVASTATIN CALCIUM
     Dosage: 20 MG
     Route: 048
  5. PRADAXA [Suspect]
     Active Substance: DABIGATRAN ETEXILATE MESYLATE
     Indication: ATRIAL FIBRILLATION
     Dosage: 300 MG
     Route: 048
     Dates: end: 20120419
  6. LASIX [Concomitant]
     Active Substance: FUROSEMIDE
     Dosage: 20 MG
     Route: 048
  7. SYNTHROID [Concomitant]
     Active Substance: LEVOTHYROXINE SODIUM
     Dosage: 25 MCG
     Route: 048
  8. KLOR-CON [Concomitant]
     Active Substance: POTASSIUM CHLORIDE
     Dosage: 10 MEQ
     Route: 048
  9. GLUCOPHAGE XR [Concomitant]
     Active Substance: METFORMIN HYDROCHLORIDE
     Dosage: 2000 MG
     Route: 048
  10. BETAPACE [Concomitant]
     Active Substance: SOTALOL HYDROCHLORIDE
     Dosage: 320 MG
     Route: 048

REACTIONS (5)
  - Pneumonia aspiration [Recovered/Resolved]
  - Respiratory failure [Recovered/Resolved]
  - Haemorrhagic stroke [Unknown]
  - Coagulopathy [Recovered/Resolved]
  - Thrombocytopenia [Recovered/Resolved]

NARRATIVE: CASE EVENT DATE: 20120419
